FAERS Safety Report 8009997-4 (Version None)
Quarter: 2011Q4

REPORT INFORMATION
  Report Type: 
  Country: None (occurrence: None)
  Receive Date: 20111228
  Receipt Date: 20111214
  Transmission Date: 20120403
  Serious: Yes (Hospitalization, Other)
  Sender: FDA-Public Use
  Company Number: US-ELI_LILLY_AND_COMPANY-US201111007851

PATIENT
  Sex: Female
  Weight: 68.027 kg

DRUGS (11)
  1. VITAMIN D [Concomitant]
     Dosage: 1000 UL, QD
  2. HYDROCODONE [Concomitant]
     Indication: PAIN
     Dosage: 10 MG, PRN
  3. COREG [Concomitant]
     Dosage: 20 MG, QD
  4. REQUIP [Concomitant]
     Dosage: 1 MG, UNK
  5. COLACE [Concomitant]
     Dosage: 100 MG, QD
  6. SULFAMETHOXAZOLE AND TRIMETHOPRIM [Concomitant]
     Dosage: 1 DF, BID
     Route: 065
     Dates: end: 20111122
  7. COMBIVENT [Concomitant]
     Dosage: UNK, PRN
  8. FORTEO [Suspect]
     Indication: OSTEOPOROSIS
     Dosage: 20 UG, QD
     Route: 065
     Dates: start: 20111008
  9. NEXIUM [Concomitant]
     Dosage: 40 MG, QD
  10. HYDROCHLOROTHIAZIDE [Concomitant]
     Dosage: 12.5 MG, QD
     Route: 065
  11. TESSALON [Concomitant]
     Indication: COUGH
     Dosage: 100 MG, PRN
     Route: 048

REACTIONS (3)
  - ACUTE RESPIRATORY FAILURE [None]
  - PNEUMONIA BACTERIAL [None]
  - LUNG NEOPLASM [None]
